FAERS Safety Report 11515345 (Version 2)
Quarter: 2015Q4

REPORT INFORMATION
  Report Type: Report from Study
  Country: KR (occurrence: KR)
  Receive Date: 20150916
  Receipt Date: 20151216
  Transmission Date: 20160304
  Serious: Yes (Hospitalization)
  Sender: FDA-Public Use
  Company Number: KR-OTSUKA-2015_009756

PATIENT
  Age: 79 Year
  Sex: Male

DRUGS (6)
  1. BLINDED CILOSTAZOL [Suspect]
     Active Substance: CILOSTAZOL
     Dosage: UNK, QD
     Route: 048
     Dates: start: 20150909
  2. BLINDED *ASPIRIN [Suspect]
     Active Substance: ASPIRIN
     Indication: PROPHYLAXIS
     Dosage: UNK, QD
     Route: 048
     Dates: start: 20150804, end: 20150907
  3. BLINDED CILOSTAZOL [Suspect]
     Active Substance: CILOSTAZOL
     Indication: PROPHYLAXIS
     Dosage: UNK, QD
     Route: 048
     Dates: start: 20150804, end: 20150907
  4. BLINDED *ASPIRIN [Suspect]
     Active Substance: ASPIRIN
     Dosage: UNK, QD
     Route: 048
     Dates: start: 20150909
  5. LIPINON [Concomitant]
     Indication: HYPERLIPIDAEMIA
     Dosage: 10 MG,QD
     Route: 048
     Dates: start: 20121214
  6. ORODIPINE [Concomitant]
     Indication: HYPERTENSION
     Dosage: 5 MG,QD
     Route: 048
     Dates: start: 20140819

REACTIONS (1)
  - Urinary tract pain [Recovered/Resolved]

NARRATIVE: CASE EVENT DATE: 20150906
